FAERS Safety Report 26137161 (Version 1)
Quarter: 2025Q4

REPORT INFORMATION
  Report Type: Spontaneous
  Country: US (occurrence: US)
  Receive Date: 20251209
  Receipt Date: 20251209
  Transmission Date: 20260117
  Serious: Yes (Life-Threatening, Hospitalization, Other)
  Sender: MYLAN
  Company Number: US-MYLANLABS-2025M1102846

PATIENT
  Age: 62 Year
  Sex: Female

DRUGS (52)
  1. ETOPOSIDE [Suspect]
     Active Substance: ETOPOSIDE
     Indication: Adrenocortical carcinoma
     Dosage: UNK
  2. ETOPOSIDE [Suspect]
     Active Substance: ETOPOSIDE
     Dosage: UNK
     Route: 065
  3. ETOPOSIDE [Suspect]
     Active Substance: ETOPOSIDE
     Dosage: UNK
     Route: 065
  4. ETOPOSIDE [Suspect]
     Active Substance: ETOPOSIDE
     Dosage: UNK
  5. DOXORUBICIN [Suspect]
     Active Substance: DOXORUBICIN
     Indication: Adrenocortical carcinoma
     Dosage: UNK
  6. DOXORUBICIN [Suspect]
     Active Substance: DOXORUBICIN
     Dosage: UNK
     Route: 065
  7. DOXORUBICIN [Suspect]
     Active Substance: DOXORUBICIN
     Dosage: UNK
     Route: 065
  8. DOXORUBICIN [Suspect]
     Active Substance: DOXORUBICIN
     Dosage: UNK
  9. PREDNISONE [Suspect]
     Active Substance: PREDNISONE
     Indication: Hypoglycaemia
     Dosage: HIGH DOSE
  10. PREDNISONE [Suspect]
     Active Substance: PREDNISONE
     Dosage: HIGH DOSE
     Route: 065
  11. PREDNISONE [Suspect]
     Active Substance: PREDNISONE
     Dosage: HIGH DOSE
     Route: 065
  12. PREDNISONE [Suspect]
     Active Substance: PREDNISONE
     Dosage: HIGH DOSE
  13. OCTREOTIDE [Suspect]
     Active Substance: OCTREOTIDE
     Indication: Hypoglycaemia
     Dosage: UNK
  14. OCTREOTIDE [Suspect]
     Active Substance: OCTREOTIDE
     Dosage: UNK
     Route: 065
  15. OCTREOTIDE [Suspect]
     Active Substance: OCTREOTIDE
     Dosage: UNK
     Route: 065
  16. OCTREOTIDE [Suspect]
     Active Substance: OCTREOTIDE
     Dosage: UNK
  17. GLUCAGON [Suspect]
     Active Substance: GLUCAGON
     Indication: Hypoglycaemia
     Dosage: UNK (IV DRIP)
  18. GLUCAGON [Suspect]
     Active Substance: GLUCAGON
     Dosage: UNK (IV DRIP)
     Route: 042
  19. GLUCAGON [Suspect]
     Active Substance: GLUCAGON
     Dosage: UNK (IV DRIP)
     Route: 042
  20. GLUCAGON [Suspect]
     Active Substance: GLUCAGON
     Dosage: UNK (IV DRIP)
  21. MITOTANE [Suspect]
     Active Substance: MITOTANE
     Indication: Adrenocortical carcinoma
     Dosage: UNK
  22. MITOTANE [Suspect]
     Active Substance: MITOTANE
     Dosage: UNK
     Route: 065
  23. MITOTANE [Suspect]
     Active Substance: MITOTANE
     Dosage: UNK
     Route: 065
  24. MITOTANE [Suspect]
     Active Substance: MITOTANE
     Dosage: UNK
  25. CISPLATIN [Suspect]
     Active Substance: CISPLATIN
     Indication: Adrenocortical carcinoma
     Dosage: UNK
  26. CISPLATIN [Suspect]
     Active Substance: CISPLATIN
     Dosage: UNK
     Route: 065
  27. CISPLATIN [Suspect]
     Active Substance: CISPLATIN
     Dosage: UNK
     Route: 065
  28. CISPLATIN [Suspect]
     Active Substance: CISPLATIN
     Dosage: UNK
  29. PEMBROLIZUMAB [Suspect]
     Active Substance: PEMBROLIZUMAB
     Indication: Adrenocortical carcinoma
     Dosage: UNK
  30. PEMBROLIZUMAB [Suspect]
     Active Substance: PEMBROLIZUMAB
     Dosage: UNK
     Route: 065
  31. PEMBROLIZUMAB [Suspect]
     Active Substance: PEMBROLIZUMAB
     Dosage: UNK
     Route: 065
  32. PEMBROLIZUMAB [Suspect]
     Active Substance: PEMBROLIZUMAB
     Dosage: UNK
  33. OLAPARIB [Suspect]
     Active Substance: OLAPARIB
     Indication: Adrenocortical carcinoma
     Dosage: UNK
  34. OLAPARIB [Suspect]
     Active Substance: OLAPARIB
     Dosage: UNK
     Route: 065
  35. OLAPARIB [Suspect]
     Active Substance: OLAPARIB
     Dosage: UNK
     Route: 065
  36. OLAPARIB [Suspect]
     Active Substance: OLAPARIB
     Dosage: UNK
  37. IVOSIDENIB [Suspect]
     Active Substance: IVOSIDENIB
     Indication: Adrenocortical carcinoma
     Dosage: UNK
  38. IVOSIDENIB [Suspect]
     Active Substance: IVOSIDENIB
     Dosage: UNK
     Route: 065
  39. IVOSIDENIB [Suspect]
     Active Substance: IVOSIDENIB
     Dosage: UNK
     Route: 065
  40. IVOSIDENIB [Suspect]
     Active Substance: IVOSIDENIB
     Dosage: UNK
  41. DEXTROSE [Suspect]
     Active Substance: DEXTROSE MONOHYDRATE
     Indication: Hypoglycaemia
     Dosage: GLUCOSE 50
  42. DEXTROSE [Suspect]
     Active Substance: DEXTROSE MONOHYDRATE
     Dosage: GLUCOSE 50
     Route: 042
  43. DEXTROSE [Suspect]
     Active Substance: DEXTROSE MONOHYDRATE
     Dosage: GLUCOSE 50
     Route: 042
  44. DEXTROSE [Suspect]
     Active Substance: DEXTROSE MONOHYDRATE
     Dosage: GLUCOSE 50
  45. PASIREOTIDE [Concomitant]
     Active Substance: PASIREOTIDE
     Indication: Hypoglycaemia
     Dosage: 60 MILLIGRAM
  46. PASIREOTIDE [Concomitant]
     Active Substance: PASIREOTIDE
     Dosage: 60 MILLIGRAM
     Route: 065
  47. PASIREOTIDE [Concomitant]
     Active Substance: PASIREOTIDE
     Dosage: 60 MILLIGRAM
     Route: 065
  48. PASIREOTIDE [Concomitant]
     Active Substance: PASIREOTIDE
     Dosage: 60 MILLIGRAM
  49. DIAZOXIDE [Concomitant]
     Active Substance: DIAZOXIDE
     Indication: Hypoglycaemia
     Dosage: 5 MILLIGRAM/KILOGRAM, Q8H
  50. DIAZOXIDE [Concomitant]
     Active Substance: DIAZOXIDE
     Dosage: 5 MILLIGRAM/KILOGRAM, Q8H
     Route: 065
  51. DIAZOXIDE [Concomitant]
     Active Substance: DIAZOXIDE
     Dosage: 5 MILLIGRAM/KILOGRAM, Q8H
     Route: 065
  52. DIAZOXIDE [Concomitant]
     Active Substance: DIAZOXIDE
     Dosage: 5 MILLIGRAM/KILOGRAM, Q8H

REACTIONS (4)
  - Drug ineffective [Unknown]
  - Disease progression [Unknown]
  - Cardiomyopathy [Unknown]
  - Hypervolaemia [Unknown]
